FAERS Safety Report 24555528 (Version 1)
Quarter: 2024Q4

REPORT INFORMATION
  Report Type: Spontaneous
  Country: US (occurrence: None)
  Receive Date: 20241025
  Receipt Date: 20241025
  Transmission Date: 20250114
  Serious: Yes (Other)
  Sender: Public
  Company Number: None

PATIENT
  Age: 5 Month
  Sex: Female
  Weight: 6.80 kg

DRUGS (1)
  1. BEYFORTUS [Suspect]
     Active Substance: NIRSEVIMAB-ALIP
     Dosage: 1 ML ONCE TIME INTRAMUSCULAR ?
     Route: 030

REACTIONS (2)
  - Injection site swelling [None]
  - Injection site induration [None]

NARRATIVE: CASE EVENT DATE: 20241025
